FAERS Safety Report 25676323 (Version 2)
Quarter: 2025Q3

REPORT INFORMATION
  Report Type: Spontaneous
  Country: US (occurrence: US)
  Receive Date: 20250813
  Receipt Date: 20250813
  Transmission Date: 20251021
  Serious: No
  Sender: BRISTOL-MYERS SQUIBB COMPANY
  Company Number: US-BRISTOL-MYERS SQUIBB COMPANY-2025-112300

PATIENT
  Age: 65 Year
  Sex: Male

DRUGS (2)
  1. REVLIMID [Suspect]
     Active Substance: LENALIDOMIDE
     Indication: Plasma cell myeloma
     Dates: start: 20250713
  2. REVLIMID [Suspect]
     Active Substance: LENALIDOMIDE
     Dosage: CYCLE IS 21 DAYS ON 7 DAYS OFF
     Dates: start: 20250701

REACTIONS (2)
  - Product dispensing issue [Unknown]
  - Therapy interrupted [Unknown]
